FAERS Safety Report 4834472-5 (Version None)
Quarter: 2005Q4

REPORT INFORMATION
  Report Type: 
  Country: None (occurrence: None)
  Receive Date: 20051122
  Receipt Date: 20041214
  Transmission Date: 20060501
  Serious: No
  Sender: FDA-Public Use
  Company Number: US-BRISTOL-MYERS SQUIBB COMPANY-12794244

PATIENT
  Age: 47 Year
  Sex: Male
  Weight: 82 kg

DRUGS (9)
  1. PRAVACHOL [Suspect]
     Indication: BLOOD CHOLESTEROL
     Dosage: 40 MG DAILY FOR 3 YEARS; DOSE INCREASED TO 80MG DAILY AUG-SEP 2004
     Route: 048
  2. ALTACE [Concomitant]
     Dosage: HAS NOT TAKEN MEDICATION IN 2 WEEKS
  3. PROTONIX [Concomitant]
     Dosage: HAS NOT TAKEN MEDICATION IN 2 WEEKS
  4. ECOTRIN [Concomitant]
     Dosage: HAS NOT TAKEN MEDICATION IN THE PAST 2 WEEKS
  5. PAXIL [Concomitant]
  6. IRON [Concomitant]
     Dosage: STOPPED 3 WEEKS AGO
  7. HYDROCODONE [Concomitant]
  8. PREDNISONE [Concomitant]
     Dosage: TOOK FOR A ^FEW DAYS^
  9. TRAMADOL HCL [Concomitant]

REACTIONS (1)
  - MYALGIA [None]
